FAERS Safety Report 12931485 (Version 2)
Quarter: 2017Q1

REPORT INFORMATION
  Report Type: Spontaneous
  Country: US (occurrence: US)
  Receive Date: 20161110
  Receipt Date: 20170105
  Transmission Date: 20170428
  Serious: No
  Sender: FDA-Public Use
  Company Number: US-JNJFOC-20161101864

PATIENT
  Sex: Male

DRUGS (11)
  1. WARFARIN [Interacting]
     Active Substance: WARFARIN
     Indication: ARRHYTHMIA SUPRAVENTRICULAR
     Dosage: MEAN WEEKLY DOSE
     Route: 065
  2. WARFARIN [Interacting]
     Active Substance: WARFARIN
     Indication: VENTRICULAR TACHYCARDIA
     Dosage: MEAN WEEKLY DOSE
     Route: 065
  3. WARFARIN [Interacting]
     Active Substance: WARFARIN
     Indication: PERIPHERAL ARTERIAL OCCLUSIVE DISEASE
     Dosage: MEAN WEEKLY DOSE
     Route: 065
  4. WARFARIN [Interacting]
     Active Substance: WARFARIN
     Indication: VENTRICULAR TACHYCARDIA
     Dosage: MEAN WEEKLY DOSE
     Route: 065
  5. WARFARIN [Interacting]
     Active Substance: WARFARIN
     Indication: HEART VALVE REPLACEMENT
     Dosage: MEAN WEEKLY DOSE
     Route: 065
  6. WARFARIN [Interacting]
     Active Substance: WARFARIN
     Indication: PERIPHERAL ARTERIAL OCCLUSIVE DISEASE
     Dosage: MEAN WEEKLY DOSE
     Route: 065
  7. WARFARIN [Interacting]
     Active Substance: WARFARIN
     Indication: HEART VALVE REPLACEMENT
     Dosage: MEAN WEEKLY DOSE
     Route: 065
  8. SIMEPREVIR [Suspect]
     Active Substance: SIMEPREVIR
     Indication: HEPATITIS C
     Route: 065
  9. WARFARIN [Interacting]
     Active Substance: WARFARIN
     Indication: ARRHYTHMIA SUPRAVENTRICULAR
     Dosage: MEAN WEEKLY DOSE
     Route: 065
  10. RIBAVIRIN. [Suspect]
     Active Substance: RIBAVIRIN
     Indication: HEPATITIS C
     Route: 065
  11. SOFOSBUVIR [Suspect]
     Active Substance: SOFOSBUVIR
     Indication: HEPATITIS C
     Route: 065

REACTIONS (2)
  - Drug interaction [Recovered/Resolved]
  - International normalised ratio decreased [Recovered/Resolved]
